FAERS Safety Report 13741697 (Version 1)
Quarter: 2017Q3

REPORT INFORMATION
  Report Type: Spontaneous
  Country: US (occurrence: US)
  Receive Date: 20170711
  Receipt Date: 20170711
  Transmission Date: 20171127
  Serious: No
  Sender: FDA-Public Use
  Company Number: None

PATIENT
  Age: 46 Year
  Sex: Female

DRUGS (1)
  1. ZEPATIER [Suspect]
     Active Substance: ELBASVIR\GRAZOPREVIR

REACTIONS (4)
  - Memory impairment [None]
  - Nephrolithiasis [None]
  - Escherichia bacteraemia [None]
  - Drug dose omission [None]

NARRATIVE: CASE EVENT DATE: 20170711
